FAERS Safety Report 4358718-5 (Version None)
Quarter: 2004Q2

REPORT INFORMATION
  Report Type: 
  Country: None (occurrence: None)
  Receive Date: 20040517
  Receipt Date: 20030130
  Transmission Date: 20050107
  Serious: Yes (Hospitalization, Other)
  Sender: FDA-Public Use
  Company Number: PHEH2003US01135

PATIENT
  Age: 60 Year
  Sex: Female

DRUGS (13)
  1. AREDIA [Suspect]
     Indication: MULTIPLE MYELOMA
     Dosage: 90MG/Q4WKS
     Route: 042
     Dates: start: 19951229, end: 20020329
  2. TICLID [Concomitant]
     Dosage: 250 MG, UNK
  3. FELDENE [Concomitant]
     Dosage: 10 MG, UNK
  4. PEPCID [Concomitant]
     Dosage: UNK/UNK
  5. PAXIL [Concomitant]
     Dosage: 20 MG, UNK
  6. TYLENOL W/ CODEINE [Concomitant]
     Dosage: UNK/UNK
  7. ZOMETA [Suspect]
     Indication: MULTIPLE MYELOMA
     Dosage: 4 MG, ONCE/SINGLE
     Route: 042
     Dates: start: 20020502, end: 20020502
  8. PENICILLIN [Concomitant]
  9. PERCOCET [Concomitant]
     Dosage: UNK/Q 4-6 HOURS
  10. CIPROFLOXACIN [Concomitant]
     Indication: RESPIRATORY TRACT INFECTION
  11. BIAXIN [Concomitant]
  12. NEUROTON [Concomitant]
     Indication: PAIN IN JAW
  13. DURAGESIC [Concomitant]
     Indication: PAIN IN JAW

REACTIONS (19)
  - BONE DENSITY DECREASED [None]
  - CHRONIC SINUSITIS [None]
  - FISTULA [None]
  - IMPAIRED HEALING [None]
  - INFECTION [None]
  - MANDIBULECTOMY [None]
  - NERVE BLOCK [None]
  - NEURECTOMY [None]
  - ORAL SURGERY [None]
  - OSTEOMYELITIS [None]
  - OSTEONECROSIS [None]
  - PAIN IN JAW [None]
  - PARAESTHESIA ORAL [None]
  - SEQUESTRECTOMY [None]
  - SWELLING [None]
  - TOOTH ABSCESS [None]
  - TOOTH EXTRACTION [None]
  - TOOTH IMPACTED [None]
  - WOUND DEBRIDEMENT [None]
